FAERS Safety Report 4360667-3 (Version None)
Quarter: 2004Q2

REPORT INFORMATION
  Report Type: 
  Country: None (occurrence: None)
  Receive Date: 20040514
  Receipt Date: 20040427
  Transmission Date: 20050107
  Serious: Yes (Hospitalization)
  Sender: FDA-Public Use
  Company Number: 196732

PATIENT
  Age: 39 Year
  Sex: Male

DRUGS (1)
  1. AVONEX ^BIOGEN^ [Suspect]
     Indication: MULTIPLE SCLEROSIS RELAPSE
     Dosage: 30 MCG QW IM
     Route: 030
     Dates: start: 20030329, end: 20040401

REACTIONS (2)
  - COLOSTOMY [None]
  - PNEUMONIA [None]
